FAERS Safety Report 8536793-1 (Version None)
Quarter: 2012Q3

REPORT INFORMATION
  Report Type: 
  Country: None (occurrence: None)
  Receive Date: 20120713
  Receipt Date: 20120626
  Transmission Date: 20120928
  Serious: Yes (Other)
  Sender: FDA-Public Use
  Company Number: JPI-P-020919

PATIENT
  Age: 32 Year
  Sex: Female
  Weight: 56.6996 kg

DRUGS (5)
  1. XYREM [Suspect]
     Indication: NARCOLEPSY
     Dosage: 6;4.5 GM (3 GM, 2 IN 1 D) (SPLIT, NIGHTLY) ORAL
     Route: 048
     Dates: start: 20111110
  2. XYREM [Suspect]
     Indication: SOMNOLENCE
     Dosage: 6;4.5 GM (3 GM, 2 IN 1 D) (SPLIT, NIGHTLY) ORAL
     Route: 048
     Dates: start: 20111110
  3. XYREM [Suspect]
     Indication: NARCOLEPSY
     Dosage: 6;4.5 GM (3 GM, 2 IN 1 D) (SPLIT, NIGHTLY) ORAL
     Route: 048
     Dates: start: 20120101
  4. XYREM [Suspect]
     Indication: SOMNOLENCE
     Dosage: 6;4.5 GM (3 GM, 2 IN 1 D) (SPLIT, NIGHTLY) ORAL
     Route: 048
     Dates: start: 20120101
  5. MULTIPLE UNSPECIFIED MEDICATIONS [Concomitant]

REACTIONS (6)
  - VOMITING [None]
  - HYPERHIDROSIS [None]
  - MALIGNANT MELANOMA [None]
  - PALLOR [None]
  - WEIGHT INCREASED [None]
  - NAUSEA [None]
